FAERS Safety Report 23428695 (Version 1)
Quarter: 2024Q1

REPORT INFORMATION
  Report Type: Spontaneous
  Country: CA (occurrence: CA)
  Receive Date: 20240122
  Receipt Date: 20240122
  Transmission Date: 20240410
  Serious: Yes (Other)
  Sender: FDA-Public Use
  Company Number: CA-FreseniusKabi-FK202401045

PATIENT
  Age: 19 Year
  Sex: Male

DRUGS (1)
  1. VANCOMYCIN [Suspect]
     Active Substance: VANCOMYCIN
     Indication: Infective pulmonary exacerbation of cystic fibrosis
     Dosage: DOSAGE FORM: NOT SPECIFIED
     Route: 041

REACTIONS (1)
  - Acute kidney injury [Recovering/Resolving]
